FAERS Safety Report 11544169 (Version 1)
Quarter: 2015Q3

REPORT INFORMATION
  Report Type: Spontaneous
  Country: US (occurrence: None)
  Receive Date: 20150923
  Receipt Date: 20150923
  Transmission Date: 20151125
  Serious: Yes (Death)
  Sender: FDA-Public Use
  Company Number: None

PATIENT
  Age: 62 Year
  Sex: Male
  Weight: 106 kg

DRUGS (4)
  1. VERAPAMIL [Concomitant]
     Active Substance: VERAPAMIL HYDROCHLORIDE
  2. AZITHROMYCIN [Concomitant]
     Active Substance: AZITHROMYCIN ANHYDROUS
  3. NADOLOL. [Suspect]
     Active Substance: NADOLOL
     Indication: GASTRIC DISORDER
  4. NADOLOL. [Suspect]
     Active Substance: NADOLOL
     Indication: PORTAL HYPERTENSION

REACTIONS (3)
  - Bradycardia [None]
  - General physical health deterioration [None]
  - Bronchospasm [None]

NARRATIVE: CASE EVENT DATE: 20150821
